FAERS Safety Report 18000319 (Version 2)
Quarter: 2020Q3

REPORT INFORMATION
  Report Type: Spontaneous
  Country: CN (occurrence: CN)
  Receive Date: 20200709
  Receipt Date: 20200714
  Transmission Date: 20201103
  Serious: Yes (Other)
  Sender: FDA-Public Use
  Company Number: CN-ASTRAZENECA-2020SE85242

PATIENT
  Age: 65 Year
  Sex: Male
  Weight: 50 kg

DRUGS (3)
  1. CISPLATIN. [Concomitant]
     Active Substance: CISPLATIN
     Indication: GALLBLADDER CANCER
     Dosage: 20?30MG, ONCE EVERY 2 WEEKS
     Route: 042
  2. LENVATINIB [Concomitant]
     Active Substance: LENVATINIB
  3. IMFINZI [Suspect]
     Active Substance: DURVALUMAB
     Indication: GALLBLADDER CANCER
     Dosage: 1150MG, ONCE EVERY TWO WEEKS, TOTALLY USED TWICE, ONCE EVERY TWO WEEKS
     Route: 042

REACTIONS (7)
  - Hyperhidrosis [Recovered/Resolved]
  - Asthenia [Not Recovered/Not Resolved]
  - Decreased appetite [Unknown]
  - Pyrexia [Recovered/Resolved]
  - Fatigue [Not Recovered/Not Resolved]
  - Nausea [Recovered/Resolved]
  - Malignant neoplasm progression [Unknown]

NARRATIVE: CASE EVENT DATE: 202003
